FAERS Safety Report 6582172-6 (Version None)
Quarter: 2010Q1

REPORT INFORMATION
  Report Type: 
  Country: None (occurrence: None)
  Receive Date: 20100216
  Receipt Date: 20090810
  Transmission Date: 20100710
  Serious: Yes (Disabling, Other)
  Sender: FDA-Public Use
  Company Number: US-JNJFOC-20090406804

PATIENT
  Sex: Male

DRUGS (2)
  1. LEVAQUIN [Suspect]
     Indication: EPIDIDYMITIS
     Route: 065
  2. ALEVE (CAPLET) [Interacting]
     Indication: DRUG USE FOR UNKNOWN INDICATION
     Route: 065

REACTIONS (19)
  - ANXIETY [None]
  - BALANCE DISORDER [None]
  - CONTRAINDICATION TO MEDICAL TREATMENT [None]
  - CONVULSION [None]
  - DRUG INTERACTION [None]
  - GASTROINTESTINAL DISORDER [None]
  - HEADACHE [None]
  - INSOMNIA [None]
  - LIVER INJURY [None]
  - MENTAL DISORDER DUE TO A GENERAL MEDICAL CONDITION [None]
  - MYALGIA [None]
  - NERVE INJURY [None]
  - NEUROPATHY PERIPHERAL [None]
  - NIGHTMARE [None]
  - SUICIDAL IDEATION [None]
  - TENDON INJURY [None]
  - TENDONITIS [None]
  - TREMOR [None]
  - VISUAL IMPAIRMENT [None]
